FAERS Safety Report 13540526 (Version 3)
Quarter: 2018Q4

REPORT INFORMATION
  Report Type: Spontaneous
  Country: FR (occurrence: FR)
  Receive Date: 20170512
  Receipt Date: 20181023
  Transmission Date: 20190204
  Serious: Yes (Hospitalization)
  Sender: FDA-Public Use
  Company Number: FR-PFIZER INC-2017200124

PATIENT
  Age: 26 Year
  Sex: Female
  Weight: 68 kg

DRUGS (80)
  1. SOLU-MEDROL [Suspect]
     Active Substance: METHYLPREDNISOLONE SODIUM SUCCINATE
     Indication: BURKITT^S LYMPHOMA STAGE IV
     Dosage: 40 MG, UNK
     Dates: start: 20170120, end: 20170120
  2. SOLU-MEDROL [Suspect]
     Active Substance: METHYLPREDNISOLONE SODIUM SUCCINATE
     Dosage: 0.50 MG/KG, CYCLIC
     Route: 041
     Dates: start: 20170310, end: 20170310
  3. FLAGYL [Suspect]
     Active Substance: METRONIDAZOLE\METRONIDAZOLE HYDROCHLORIDE
     Indication: ESCHERICHIA PYELONEPHRITIS
     Dosage: UNK
     Route: 041
     Dates: start: 20170213, end: 20170224
  4. DEPO-MEDROL [Concomitant]
     Active Substance: METHYLPREDNISOLONE ACETATE
     Dosage: 40 MG, CYCLIC
     Dates: start: 20170121, end: 20170121
  5. METHOTREXATE. [Concomitant]
     Active Substance: METHOTREXATE
     Dosage: UNK
     Dates: start: 20170111, end: 20170111
  6. METHOTREXATE. [Concomitant]
     Active Substance: METHOTREXATE
     Dosage: 15 MG, CYCLIC
     Route: 037
     Dates: start: 20170125, end: 20170125
  7. IMUREL [Concomitant]
     Active Substance: AZATHIOPRINE SODIUM
     Indication: PROPHYLAXIS AGAINST TRANSPLANT REJECTION
     Dosage: 50 MG, 1X/DAY
     Route: 048
     Dates: start: 20160704, end: 20170106
  8. CYCLOPHOSPHAMIDE. [Concomitant]
     Active Substance: CYCLOPHOSPHAMIDE
     Indication: BURKITT^S LYMPHOMA STAGE IV
     Dosage: UNK
     Dates: start: 20170111, end: 20170111
  9. SOLUPRED [PREDNISOLONE METASULFOBENZOATE SODIUM] [Concomitant]
     Active Substance: PREDNISOLONE SODIUM METAZOATE
     Dosage: 60 MG/M2, CYCLIC
     Dates: start: 20170124, end: 20170124
  10. HYDROCORTISONE HEMISUCCINATE [Concomitant]
     Active Substance: HYDROCORTISONE HEMISUCCINATE
     Dosage: 25 MG, CYCLIC
     Dates: start: 20170215, end: 20170215
  11. ETOPOSIDE MYLAN [Suspect]
     Active Substance: ETOPOSIDE
     Dosage: 200 MG/M2, CYCLIC
     Route: 041
     Dates: start: 20170310, end: 20170310
  12. ARACYTINE [Concomitant]
     Active Substance: CYTARABINE
     Dosage: 40 MG, DAILY
     Route: 037
     Dates: start: 20170121, end: 20170121
  13. DEPO-MEDROL [Concomitant]
     Active Substance: METHYLPREDNISOLONE ACETATE
     Dosage: 40 MG, CYCLIC
     Dates: start: 20170125, end: 20170125
  14. METHOTREXATE. [Concomitant]
     Active Substance: METHOTREXATE
     Dosage: UNK
     Dates: start: 20170115, end: 20170115
  15. METHOTREXATE. [Concomitant]
     Active Substance: METHOTREXATE
     Dosage: 3 G/M2
     Dates: start: 20170210, end: 20170210
  16. DOXORUBICIN HYDROCHLORIDE. [Concomitant]
     Active Substance: DOXORUBICIN HYDROCHLORIDE
     Indication: BURKITT^S LYMPHOMA STAGE IV
     Dosage: 60 MG/M2, CYCLIC
     Dates: start: 20170121, end: 20170121
  17. CORTANCYL [Concomitant]
     Active Substance: PREDNISONE
     Indication: PROPHYLAXIS AGAINST TRANSPLANT REJECTION
     Dosage: 5 MG, 1X/DAY
     Route: 048
     Dates: start: 20170413
  18. CYCLOPHOSPHAMIDE. [Concomitant]
     Active Substance: CYCLOPHOSPHAMIDE
     Dosage: 500 MG/M2, CYCLIC
     Dates: start: 20170121, end: 20170121
  19. CYCLOPHOSPHAMIDE. [Concomitant]
     Active Substance: CYCLOPHOSPHAMIDE
     Dosage: 100 MG/M2, CYCLIC
     Dates: start: 20170213, end: 20170213
  20. FORTUM [Concomitant]
     Active Substance: CEFTAZIDIME
     Indication: BACTERIAL PYELONEPHRITIS
     Dosage: UNK
     Dates: start: 20170130, end: 20170213
  21. CEFTAZIDIME. [Concomitant]
     Active Substance: CEFTAZIDIME
     Indication: BACTERIAL PYELONEPHRITIS
     Dosage: UNK
     Dates: start: 20170224, end: 20170309
  22. SOLUPRED [PREDNISOLONE METASULFOBENZOATE SODIUM] [Concomitant]
     Active Substance: PREDNISOLONE SODIUM METAZOATE
     Dosage: 60 MG/M2, CYCLIC
     Dates: start: 20170120, end: 20170120
  23. CACIT [Concomitant]
     Active Substance: CALCIUM\VITAMIN D
  24. SOLU-MEDROL [Suspect]
     Active Substance: METHYLPREDNISOLONE SODIUM SUCCINATE
     Dosage: 40 MG, UNK
     Dates: start: 20170124, end: 20170124
  25. SOLU-MEDROL [Suspect]
     Active Substance: METHYLPREDNISOLONE SODIUM SUCCINATE
     Dosage: 0.50 MG/KG, CYCLIC
     Route: 041
     Dates: start: 20170408, end: 20170408
  26. CYTARABINE SANDOZ [Suspect]
     Active Substance: CYTARABINE
     Dosage: 3000 MG/M2, CYCLIC (DAY 2 AND DAY 5)
     Route: 041
     Dates: start: 20170408, end: 20170408
  27. CYTARABINE SANDOZ [Suspect]
     Active Substance: CYTARABINE
     Dosage: 50 MG/M2, CYCLIC
     Route: 041
     Dates: start: 20170411, end: 20170411
  28. ARACYTINE [Concomitant]
     Active Substance: CYTARABINE
     Dosage: 40 MG, DAILY
     Route: 037
     Dates: start: 20170115, end: 20170115
  29. ARACYTINE [Concomitant]
     Active Substance: CYTARABINE
     Dosage: 40 MG, DAILY
     Route: 037
     Dates: start: 20170211, end: 20170211
  30. METHOTREXATE. [Concomitant]
     Active Substance: METHOTREXATE
     Dosage: 15 MG, CYCLIC
     Route: 037
     Dates: start: 20170215, end: 20170215
  31. INEXIUM [Concomitant]
     Active Substance: ESOMEPRAZOLE
     Dosage: UNK
  32. CYCLOPHOSPHAMIDE. [Concomitant]
     Active Substance: CYCLOPHOSPHAMIDE
     Dosage: 100 MG/M2, CYCLIC
     Dates: start: 20170211, end: 20170211
  33. AMIKACIN. [Concomitant]
     Active Substance: AMIKACIN
     Indication: BACTERIAL PYELONEPHRITIS
     Dosage: UNK
     Dates: start: 20170213, end: 20170224
  34. ZARZIO [Concomitant]
     Active Substance: FILGRASTIM
     Indication: FEBRILE BONE MARROW APLASIA
     Dosage: UNK
     Dates: start: 20170316
  35. DIFFU K [Concomitant]
     Active Substance: POTASSIUM CHLORIDE
  36. SOLU-MEDROL [Suspect]
     Active Substance: METHYLPREDNISOLONE SODIUM SUCCINATE
     Dosage: 40 MG/M2, CYCLIC
     Dates: start: 20170209, end: 20170209
  37. SOLU-MEDROL [Suspect]
     Active Substance: METHYLPREDNISOLONE SODIUM SUCCINATE
     Dosage: 60 MG/M2, CYCLIC
     Dates: start: 20170214, end: 20170214
  38. SOLU-MEDROL [Suspect]
     Active Substance: METHYLPREDNISOLONE SODIUM SUCCINATE
     Dosage: 0.50 MG/KG, CYCLIC
     Route: 041
     Dates: start: 20170307, end: 20170307
  39. METHOTREXATE. [Concomitant]
     Active Substance: METHOTREXATE
     Dosage: 15 MG, CYCLIC
     Route: 037
     Dates: start: 20170121, end: 20170121
  40. METHOTREXATE. [Concomitant]
     Active Substance: METHOTREXATE
     Dosage: 15 MG, CYCLIC
     Route: 037
     Dates: start: 20170211, end: 20170211
  41. DOXORUBICIN HYDROCHLORIDE. [Concomitant]
     Active Substance: DOXORUBICIN HYDROCHLORIDE
     Dosage: 60 MG/M2, CYCLIC
     Dates: start: 20170211, end: 20170211
  42. MABTHERA [Concomitant]
     Active Substance: RITUXIMAB
     Dosage: 375 MG/M2, CYCLIC
     Dates: start: 20170209, end: 20170209
  43. SOLU-MEDROL [Suspect]
     Active Substance: METHYLPREDNISOLONE SODIUM SUCCINATE
     Dosage: 0.50 MG/KG, CYCLIC
     Route: 041
     Dates: start: 20170411, end: 20170411
  44. FLAGYL [Suspect]
     Active Substance: METRONIDAZOLE\METRONIDAZOLE HYDROCHLORIDE
     Dosage: UNK
     Route: 041
     Dates: start: 20170316, end: 20170322
  45. ETOPOSIDE MYLAN [Suspect]
     Active Substance: ETOPOSIDE
     Dosage: 200 MG/M2, CYCLIC
     Route: 041
     Dates: start: 20170408, end: 20170408
  46. ARACYTINE [Concomitant]
     Active Substance: CYTARABINE
     Dosage: 40 MG, DAILY
     Route: 037
     Dates: start: 20170125, end: 20170125
  47. DEPO-MEDROL [Concomitant]
     Active Substance: METHYLPREDNISOLONE ACETATE
     Dosage: UNK
     Dates: start: 20170115, end: 20170115
  48. MABTHERA [Concomitant]
     Active Substance: RITUXIMAB
     Indication: BURKITT^S LYMPHOMA STAGE IV
     Dosage: 375 MG/M2, CYCLIC
     Dates: start: 20170119, end: 20170119
  49. MABTHERA [Concomitant]
     Active Substance: RITUXIMAB
     Dosage: 375 MG/M2, CYCLIC
     Dates: start: 20170215, end: 20170215
  50. LUTENYL [Concomitant]
     Active Substance: NOMEGESTROL ACETATE
  51. FORTUM [Concomitant]
     Active Substance: CEFTAZIDIME
     Dosage: UNK
     Dates: start: 20170224, end: 20170309
  52. SOLU-MEDROL [Suspect]
     Active Substance: METHYLPREDNISOLONE SODIUM SUCCINATE
     Dosage: 60 MG/M2, CYCLIC
     Dates: start: 20170210, end: 20170210
  53. SOLU-MEDROL [Suspect]
     Active Substance: METHYLPREDNISOLONE SODIUM SUCCINATE
     Dosage: 40 MG/M2, CYCLIC
     Dates: start: 20170214, end: 20170214
  54. VINCRISTINE SULFATE. [Suspect]
     Active Substance: VINCRISTINE SULFATE
     Dosage: 1.4 MG/M2, CYCLIC
     Route: 041
     Dates: start: 20170120, end: 20170120
  55. VINCRISTINE SULFATE. [Suspect]
     Active Substance: VINCRISTINE SULFATE
     Dosage: 1.4 MG/M2, CYCLIC
     Route: 041
     Dates: start: 20170210, end: 20170210
  56. CYTARABINE SANDOZ [Suspect]
     Active Substance: CYTARABINE
     Indication: BURKITT^S LYMPHOMA STAGE IV
     Dosage: 50 MG/M2, CYCLIC
     Route: 041
     Dates: start: 20170306, end: 20170306
  57. CYTARABINE SANDOZ [Suspect]
     Active Substance: CYTARABINE
     Dosage: 3000 MG/M2, CYCLIC
     Route: 041
     Dates: start: 20170307, end: 20170307
  58. CYTARABINE SANDOZ [Suspect]
     Active Substance: CYTARABINE
     Dosage: 3000 MG/M2, CYCLIC
     Route: 041
     Dates: start: 20170310, end: 20170310
  59. CYTARABINE SANDOZ [Suspect]
     Active Substance: CYTARABINE
     Dosage: 3000 MG/M2, CYCLIC (DAY 2 AND DAY 5)
     Route: 041
     Dates: start: 20170411, end: 20170411
  60. ARACYTINE [Concomitant]
     Active Substance: CYTARABINE
     Dosage: 40 MG, DAILY
     Route: 037
     Dates: start: 20170215, end: 20170215
  61. SOLUPRED [PREDNISOLONE METASULFOBENZOATE SODIUM] [Concomitant]
     Active Substance: PREDNISOLONE SODIUM METAZOATE
     Indication: BURKITT^S LYMPHOMA STAGE IV
     Dosage: 60 MG/M2, CYCLIC
     Dates: start: 20170111, end: 20170111
  62. SOLUPRED [PREDNISOLONE METASULFOBENZOATE SODIUM] [Concomitant]
     Active Substance: PREDNISOLONE SODIUM METAZOATE
     Dosage: 60 MG/M2, CYCLIC
     Dates: start: 20170117, end: 20170117
  63. VINCRISTINE SULFATE. [Suspect]
     Active Substance: VINCRISTINE SULFATE
     Indication: BURKITT^S LYMPHOMA STAGE IV
     Dosage: UNK
     Route: 041
     Dates: start: 20170111, end: 20170111
  64. ETOPOSIDE MYLAN [Suspect]
     Active Substance: ETOPOSIDE
     Dosage: 200 MG/M2, CYCLIC
     Route: 041
     Dates: start: 20170411, end: 20170411
  65. CYTARABINE SANDOZ [Suspect]
     Active Substance: CYTARABINE
     Dosage: 50 MG/M2, CYCLIC
     Route: 041
     Dates: start: 20170310, end: 20170310
  66. CYTARABINE SANDOZ [Suspect]
     Active Substance: CYTARABINE
     Dosage: 50 MG/M2, CYCLIC
     Route: 041
     Dates: start: 20170407, end: 20170407
  67. DEPO-MEDROL [Concomitant]
     Active Substance: METHYLPREDNISOLONE ACETATE
     Indication: BURKITT^S LYMPHOMA STAGE IV
     Dosage: UNK
     Dates: start: 20170111, end: 20170111
  68. CYCLOPHOSPHAMIDE. [Concomitant]
     Active Substance: CYCLOPHOSPHAMIDE
     Dosage: 500 MG/M2, CYCLIC
     Dates: start: 20170123, end: 20170123
  69. HYDROCORTISONE HEMISUCCINATE [Concomitant]
     Active Substance: HYDROCORTISONE HEMISUCCINATE
     Dosage: 25 MG, CYCLIC
     Dates: start: 20170211, end: 20170211
  70. VINCRISTINE SULFATE. [Suspect]
     Active Substance: VINCRISTINE SULFATE
     Dosage: 1.4 MG/M2, CYCLIC
     Route: 041
     Dates: start: 20170215, end: 20170215
  71. ETOPOSIDE MYLAN [Suspect]
     Active Substance: ETOPOSIDE
     Indication: BURKITT^S LYMPHOMA STAGE IV
     Dosage: 200 MG/M2, CYCLIC
     Route: 041
     Dates: start: 20170307, end: 20170307
  72. ARACYTINE [Concomitant]
     Active Substance: CYTARABINE
     Indication: BURKITT^S LYMPHOMA STAGE IV
     Dosage: 40 MG, DAILY
     Route: 037
     Dates: start: 20170111, end: 20170111
  73. METHOTREXATE. [Concomitant]
     Active Substance: METHOTREXATE
     Dosage: 3 G/M2
     Dates: start: 20170120, end: 20170120
  74. TAZOCILLINE [Concomitant]
     Active Substance: PIPERACILLIN SODIUM\TAZOBACTAM SODIUM
     Indication: BACTERIAL PYELONEPHRITIS
     Dosage: UNK
     Dates: start: 20170127, end: 20170130
  75. PROGRAF [Concomitant]
     Active Substance: TACROLIMUS\TACROLIMUS ANHYDROUS
     Indication: PROPHYLAXIS AGAINST TRANSPLANT REJECTION
     Dosage: 1 MG, 2X/DAY
     Route: 048
     Dates: start: 20160413, end: 20170115
  76. SPECIAFOLDINE [Concomitant]
     Active Substance: FOLIC ACID
  77. MABTHERA [Concomitant]
     Active Substance: RITUXIMAB
     Dosage: 375 MG/M2, CYCLIC
     Dates: start: 20170125, end: 20170125
  78. DAPTOMYCIN. [Concomitant]
     Active Substance: DAPTOMYCIN
     Indication: BACTERIAL PYELONEPHRITIS
     Dosage: UNK
     Dates: start: 20170130, end: 20170213
  79. MERONEM [Concomitant]
     Active Substance: MEROPENEM
     Indication: BACTERIAL PYELONEPHRITIS
     Dosage: UNK
     Dates: start: 20170213, end: 20170224
  80. ZAVICEFTA [Concomitant]
     Active Substance: AVIBACTAM SODIUM\CEFTAZIDIME
     Dosage: UNK
     Dates: start: 20170224, end: 20170309

REACTIONS (2)
  - Axonal neuropathy [Not Recovered/Not Resolved]
  - Paraesthesia [Not Recovered/Not Resolved]

NARRATIVE: CASE EVENT DATE: 201703
